FAERS Safety Report 4421331-5 (Version None)
Quarter: 2004Q3

REPORT INFORMATION
  Report Type: 
  Country: None (occurrence: None)
  Receive Date: 20040707
  Receipt Date: 20040520
  Transmission Date: 20050211
  Serious: Yes (Other)
  Sender: FDA-Public Use
  Company Number: 356282

PATIENT
  Age: 48 Year
  Sex: Male

DRUGS (1)
  1. FUZEON [Suspect]
     Dosage: 90 MG 2 PER DAY SUBCUTANEOUS
     Route: 058
     Dates: start: 20040101

REACTIONS (3)
  - INJECTION SITE REACTION [None]
  - MEDICATION ERROR [None]
  - NO ADVERSE EFFECT [None]
